FAERS Safety Report 5328261-5 (Version None)
Quarter: 2007Q2

REPORT INFORMATION
  Report Type: 
  Country: None (occurrence: None)
  Receive Date: 20070518
  Receipt Date: 20070516
  Transmission Date: 20071010
  Serious: Yes (Hospitalization)
  Sender: FDA-Public Use
  Company Number: FRWYE665616MAY07

PATIENT
  Age: 77 Year
  Sex: Female

DRUGS (5)
  1. EFFEXOR [Suspect]
     Indication: DEPRESSION
     Dosage: UNKNOWN
     Route: 048
     Dates: end: 20070403
  2. SERC [Concomitant]
     Dosage: UNKNOWN
     Route: 048
  3. FOSAVANCE [Concomitant]
     Dosage: UNKNOWN
     Route: 048
  4. NUREFLEX [Suspect]
     Dosage: UNKNOWN
     Route: 048
  5. LEXOMIL [Concomitant]
     Dosage: UNKNOWN
     Route: 048

REACTIONS (11)
  - BACK PAIN [None]
  - BONE PAIN [None]
  - DISORIENTATION [None]
  - FALL [None]
  - GENERAL PHYSICAL CONDITION ABNORMAL [None]
  - HAEMATOMA [None]
  - MALAISE [None]
  - NECK PAIN [None]
  - PSYCHOMOTOR RETARDATION [None]
  - RHABDOMYOLYSIS [None]
  - SUBDURAL HAEMATOMA [None]
